FAERS Safety Report 16111445 (Version 1)
Quarter: 2019Q1

REPORT INFORMATION
  Report Type: Spontaneous
  Country: US (occurrence: US)
  Receive Date: 20190325
  Receipt Date: 20190325
  Transmission Date: 20190418
  Serious: Yes (Hospitalization)
  Sender: FDA-Public Use
  Company Number: US-HORIZON-RAV-0063-2019

PATIENT
  Age: 30 Year
  Sex: Male

DRUGS (1)
  1. RAVICTI [Suspect]
     Active Substance: GLYCEROL PHENYLBUTYRATE
     Indication: UREA CYCLE DISORDER
     Dosage: 3 ML TID
     Dates: start: 20190305

REACTIONS (2)
  - Ammonia increased [Unknown]
  - Product dose omission [Unknown]
